FAERS Safety Report 25450733 (Version 2)
Quarter: 2025Q3

REPORT INFORMATION
  Report Type: Spontaneous
  Country: US (occurrence: US)
  Receive Date: 20250618
  Receipt Date: 20250915
  Transmission Date: 20251020
  Serious: No
  Sender: BRISTOL-MYERS SQUIBB COMPANY
  Company Number: US-BRISTOL-MYERS SQUIBB COMPANY-2025-086166

PATIENT
  Age: 66 Year
  Sex: Female

DRUGS (2)
  1. ORENCIA [Suspect]
     Active Substance: ABATACEPT
     Indication: Rheumatoid arthritis
     Dates: start: 202412
  2. ORENCIA [Suspect]
     Active Substance: ABATACEPT
     Dates: start: 202412

REACTIONS (3)
  - Arthralgia [Unknown]
  - General physical health deterioration [Unknown]
  - Gait disturbance [Unknown]
